FAERS Safety Report 7012702-1 (Version None)
Quarter: 2010Q3

REPORT INFORMATION
  Report Type: 
  Country: None (occurrence: None)
  Receive Date: 20100924
  Receipt Date: 20100918
  Transmission Date: 20110219
  Serious: Yes (Hospitalization)
  Sender: FDA-Public Use
  Company Number: JP-ROCHE-728563

PATIENT
  Sex: Female

DRUGS (2)
  1. BLINDED TOCILIZUMAB [Suspect]
     Indication: RHEUMATOID ARTHRITIS
     Dosage: DRUG NAME WAS REPORTED AS BLINDED MRA-SC (TOCILIZUMAB)
     Route: 058
     Dates: start: 20100723
  2. BLINDED TOCILIZUMAB [Suspect]
     Route: 042
     Dates: start: 20100723

REACTIONS (1)
  - COLITIS ISCHAEMIC [None]
